FAERS Safety Report 9038935 (Version 1)
Quarter: 2013Q1

REPORT INFORMATION
  Report Type: Spontaneous
  Country: US (occurrence: US)
  Receive Date: 20130129
  Receipt Date: 20130129
  Transmission Date: 20140127
  Serious: No
  Sender: FDA-Public Use
  Company Number: US-BAYER-2013-008697

PATIENT
  Age: 81 Year
  Sex: Female
  Weight: 63 kg

DRUGS (3)
  1. ALEVE CAPLET/TABLET,MIDOL EXTENDED RELIEF CAPLET [Suspect]
     Indication: SLEEP DISORDER THERAPY
     Dosage: 1 DF, QD
     Route: 048
     Dates: start: 2012, end: 20120109
  2. ANTIHYPERTENSIVES [Concomitant]
  3. PACE MAKER [Concomitant]

REACTIONS (2)
  - Incorrect drug administration duration [None]
  - Off label use [None]
